FAERS Safety Report 21877442 (Version 3)
Quarter: 2023Q2

REPORT INFORMATION
  Report Type: Spontaneous
  Country: JP (occurrence: JP)
  Receive Date: 20230118
  Receipt Date: 20230605
  Transmission Date: 20230722
  Serious: Yes (Hospitalization)
  Sender: FDA-Public Use
  Company Number: JP-ABBVIE-4273018

PATIENT
  Age: 51 Year
  Sex: Female
  Weight: 68 kg

DRUGS (4)
  1. RINVOQ [Suspect]
     Active Substance: UPADACITINIB
     Indication: Dermatitis atopic
     Dosage: FORM STRENGTH : 15 MG
     Route: 048
     Dates: start: 20221024, end: 20230110
  2. LATANOPROST [Suspect]
     Active Substance: LATANOPROST
     Indication: Product used for unknown indication
     Route: 065
  3. BEPOTASTINE BESYLATE [Suspect]
     Active Substance: BEPOTASTINE BESYLATE
     Indication: Product used for unknown indication
     Route: 065
  4. EPINASTINE HYDROCHLORIDE [Suspect]
     Active Substance: EPINASTINE HYDROCHLORIDE
     Indication: Product used for unknown indication
     Route: 065

REACTIONS (8)
  - Oral pustule [Recovered/Resolved]
  - Eczema herpeticum [Unknown]
  - Blister [Recovered/Resolved]
  - Varicella [Unknown]
  - Erythema [Unknown]
  - Swelling face [Recovered/Resolved]
  - Rash [Unknown]
  - Scab [Unknown]

NARRATIVE: CASE EVENT DATE: 20230110
